FAERS Safety Report 13010592 (Version 3)
Quarter: 2017Q1

REPORT INFORMATION
  Report Type: Spontaneous
  Country: CN (occurrence: CN)
  Receive Date: 20161208
  Receipt Date: 20170110
  Transmission Date: 20170428
  Serious: Yes (Hospitalization, Other)
  Sender: FDA-Public Use
  Company Number: CN-ELI_LILLY_AND_COMPANY-CN201612001282

PATIENT
  Sex: Female
  Weight: 64 kg

DRUGS (3)
  1. HUMALOG MIX50/50 [Suspect]
     Active Substance: INSULIN LISPRO
     Indication: DIABETES MELLITUS
     Dosage: 30 U, EACH MORNING
     Route: 058
     Dates: start: 2014
  2. HUMALOG MIX50/50 [Suspect]
     Active Substance: INSULIN LISPRO
     Dosage: 20 U, EACH EVENING
     Route: 058
     Dates: start: 2014
  3. DIFRAREL                           /00322801/ [Concomitant]

REACTIONS (5)
  - Nasopharyngitis [Unknown]
  - Retinal haemorrhage [Unknown]
  - Blood glucose increased [Unknown]
  - Maculopathy [Unknown]
  - Protein urine present [Unknown]

NARRATIVE: CASE EVENT DATE: 2015
